FAERS Safety Report 8387860-7 (Version None)
Quarter: 2012Q2

REPORT INFORMATION
  Report Type: 
  Country: None (occurrence: None)
  Receive Date: 20120525
  Receipt Date: 20120217
  Transmission Date: 20120825
  Serious: No
  Sender: FDA-Public Use
  Company Number: US-BRISTOL-MYERS SQUIBB COMPANY-16388498

PATIENT
  Age: 73 Year
  Sex: Male
  Weight: 115 kg

DRUGS (2)
  1. CALCITRIOL [Suspect]
     Dates: start: 20120113, end: 20120206
  2. KOMBIGLYZE XR [Suspect]
     Indication: TYPE 2 DIABETES MELLITUS
     Dosage: 1 DF= 2.5/1000 UNIT NOS. WITH MEALS. STARTED 10 DAYS AGO
     Dates: start: 20120101

REACTIONS (3)
  - BLOOD GLUCOSE ABNORMAL [None]
  - NAUSEA [None]
  - DIZZINESS [None]
